FAERS Safety Report 5036328-4 (Version None)
Quarter: 2006Q2

REPORT INFORMATION
  Report Type: 
  Country: None (occurrence: None)
  Receive Date: 20060601
  Receipt Date: 20060221
  Transmission Date: 20061013
  Serious: Yes (Hospitalization)
  Sender: FDA-Public Use
  Company Number: US200602005542

PATIENT
  Sex: Female

DRUGS (2)
  1. CYMBALTA [Suspect]
     Dosage: 90 MG
     Dates: start: 20060201
  2. ZOLOFT [Concomitant]

REACTIONS (1)
  - SEROTONIN SYNDROME [None]
